FAERS Safety Report 5158365-1 (Version None)
Quarter: 2006Q4

REPORT INFORMATION
  Report Type: 
  Country: None (occurrence: None)
  Receive Date: 20061128
  Receipt Date: 20060221
  Transmission Date: 20070319
  Serious: No
  Sender: FDA-Public Use
  Company Number: US-GLAXOSMITHKLINE-A0595155A

PATIENT
  Sex: Male

DRUGS (10)
  1. DIGOXIN [Suspect]
     Indication: DRUG USE FOR UNKNOWN INDICATION
     Dosage: .5MG UNKNOWN
     Route: 065
  2. PROTONIX [Concomitant]
  3. PLAVIX [Concomitant]
  4. ACTOS [Concomitant]
  5. DIOVAN [Concomitant]
  6. COUMADIN [Concomitant]
  7. TOPROL-XL [Concomitant]
  8. GLIPIZIDE [Concomitant]
  9. FLOMAX [Concomitant]
  10. CARDIZEM [Concomitant]

REACTIONS (3)
  - ASTHENIA [None]
  - BLOOD PRESSURE [None]
  - FATIGUE [None]
